FAERS Safety Report 7844413-4 (Version None)
Quarter: 2011Q4

REPORT INFORMATION
  Report Type: 
  Country: None (occurrence: None)
  Receive Date: 20111014
  Receipt Date: 20111010
  Transmission Date: 20120403
  Serious: Yes (Other)
  Sender: FDA-Public Use
  Company Number: 2011SP048023

PATIENT
  Age: 27 Year
  Sex: Female
  Weight: 45.3597 kg

DRUGS (1)
  1. IMPLANON [Suspect]
     Indication: CONTRACEPTION
     Dates: start: 20090424

REACTIONS (10)
  - PREGNANCY WITH IMPLANT CONTRACEPTIVE [None]
  - MENSTRUATION IRREGULAR [None]
  - MOOD SWINGS [None]
  - MATERNAL EXPOSURE DURING PREGNANCY [None]
  - TRANSIENT ISCHAEMIC ATTACK [None]
  - DEPRESSION [None]
  - WEIGHT DECREASED [None]
  - ABORTION SPONTANEOUS [None]
  - BREAST ENLARGEMENT [None]
  - BACK PAIN [None]
